FAERS Safety Report 6619578-2 (Version None)
Quarter: 2010Q1

REPORT INFORMATION
  Report Type: 
  Country: None (occurrence: None)
  Receive Date: 20100309
  Receipt Date: 20100224
  Transmission Date: 20100710
  Serious: Yes (Hospitalization)
  Sender: FDA-Public Use
  Company Number: JP-JNJFOC-20100300575

PATIENT
  Age: 51 Year
  Sex: Male

DRUGS (6)
  1. CRAVIT [Suspect]
     Indication: UPPER RESPIRATORY TRACT INFLAMMATION
     Route: 048
  2. TRANSAMIN [Concomitant]
     Indication: UPPER RESPIRATORY TRACT INFLAMMATION
     Route: 065
  3. FLOMOX [Concomitant]
     Indication: UPPER RESPIRATORY TRACT INFLAMMATION
     Route: 065
  4. LOXOT [Concomitant]
     Indication: UPPER RESPIRATORY TRACT INFLAMMATION
     Route: 065
  5. MUCODYNE [Concomitant]
     Route: 065
  6. TOWATHIEN [Concomitant]
     Route: 065

REACTIONS (2)
  - INTERSTITIAL LUNG DISEASE [None]
  - PULMONARY FIBROSIS [None]
